FAERS Safety Report 17110674 (Version 3)
Quarter: 2019Q4

REPORT INFORMATION
  Report Type: Spontaneous
  Country: US (occurrence: US)
  Receive Date: 20191204
  Receipt Date: 20191223
  Transmission Date: 20200122
  Serious: No
  Sender: FDA-Public Use
  Company Number: US-PFIZER INC-2019522123

PATIENT
  Age: 73 Year
  Sex: Female
  Weight: 52.15 kg

DRUGS (1)
  1. LATANOPROST. [Suspect]
     Active Substance: LATANOPROST
     Dosage: 2 GTT, 1X/DAY
     Dates: start: 201912, end: 201912

REACTIONS (2)
  - Vision blurred [Unknown]
  - Eye irritation [Recovered/Resolved]
